FAERS Safety Report 10262021 (Version 1)
Quarter: 2014Q2

REPORT INFORMATION
  Report Type: Spontaneous
  Country: FR (occurrence: FR)
  Receive Date: 20140626
  Receipt Date: 20140626
  Transmission Date: 20141212
  Serious: Yes (Hospitalization)
  Sender: FDA-Public Use
  Company Number: FR-JNJFOC-20140613099

PATIENT
  Age: 30 Year
  Sex: Female

DRUGS (5)
  1. RISPERDAL CONSTA [Suspect]
     Indication: PSYCHOTIC DISORDER
     Route: 030
     Dates: start: 20140324, end: 20140423
  2. LOXAPAC [Suspect]
     Indication: PRODUCT USED FOR UNKNOWN INDICATION
     Route: 048
     Dates: start: 20140411, end: 20140424
  3. ABILIFY [Concomitant]
     Route: 065
     Dates: start: 20140411
  4. XEROQUEL [Concomitant]
     Route: 065
     Dates: start: 20140412
  5. LEPTICUR [Concomitant]
     Route: 065
     Dates: start: 20140124

REACTIONS (2)
  - Tachycardia [Recovered/Resolved]
  - Electrocardiogram repolarisation abnormality [Recovered/Resolved]
